FAERS Safety Report 15262786 (Version 1)
Quarter: 2018Q3

REPORT INFORMATION
  Report Type: Spontaneous
  Country: US (occurrence: US)
  Receive Date: 20180720
  Receipt Date: 20180720
  Transmission Date: 20181010
  Serious: No
  Sender: FDA-Public Use
  Company Number: None

PATIENT
  Age: 67 Year
  Sex: Female
  Weight: 48.53 kg

DRUGS (18)
  1. LINZESS [Suspect]
     Active Substance: LINACLOTIDE
     Indication: CONSTIPATION
     Dosage: ?          QUANTITY:1 DF DOSAGE FORM;?
     Route: 048
     Dates: start: 20180701, end: 20180702
  2. SERTRALINE [Concomitant]
     Active Substance: SERTRALINE HYDROCHLORIDE
  3. CLOBETASOL [Concomitant]
     Active Substance: CLOBETASOL
  4. CONJUGATED ESTROGENS [Concomitant]
     Active Substance: ESTROGENS, CONJUGATED
  5. LORAZEPAM. [Concomitant]
     Active Substance: LORAZEPAM
  6. MULTIVITAMIN [Concomitant]
     Active Substance: VITAMINS
  7. PANTOPRAZOLE [Concomitant]
     Active Substance: PANTOPRAZOLE
  8. POLYETHYLENE GLYCOL [Concomitant]
     Active Substance: POLYETHYLENE GLYCOLS
  9. GAVISCON [Concomitant]
     Active Substance: ALUMINUM HYDROXIDE\MAGNESIUM CARBONATE
  10. VERAPAMIL CR [Concomitant]
  11. CIPROFLOXACIN HCL [Concomitant]
     Active Substance: CIPROFLOXACIN HYDROCHLORIDE
  12. FERROUS SULFATE. [Concomitant]
     Active Substance: FERROUS SULFATE
  13. INGREZZA [Concomitant]
     Active Substance: VALBENAZINE
  14. THERATEARS [Concomitant]
     Active Substance: CARBOXYMETHYLCELLULOSE SODIUM
  15. BUPROPION SR [Concomitant]
     Active Substance: BUPROPION HYDROCHLORIDE
  16. RIZATRIPTAN. [Concomitant]
     Active Substance: RIZATRIPTAN
  17. VITAMIN D [Concomitant]
     Active Substance: CHOLECALCIFEROL
  18. PYRIDOSTIGMINE (MESTINON) [Concomitant]

REACTIONS (10)
  - Loss of consciousness [None]
  - Somnolence [None]
  - Concussion [None]
  - Abdominal pain [None]
  - Contusion [None]
  - Frequent bowel movements [None]
  - Eye swelling [None]
  - Swelling face [None]
  - Presyncope [None]
  - Fall [None]

NARRATIVE: CASE EVENT DATE: 20180702
